FAERS Safety Report 16661001 (Version 3)
Quarter: 2019Q3

REPORT INFORMATION
  Report Type: Spontaneous
  Country: US (occurrence: US)
  Receive Date: 20190802
  Receipt Date: 20190917
  Transmission Date: 20191004
  Serious: No
  Sender: FDA-Public Use
  Company Number: US-PFIZER INC-2018429125

PATIENT
  Age: 68 Year
  Sex: Female
  Weight: 95 kg

DRUGS (22)
  1. XELJANZ XR [Suspect]
     Active Substance: TOFACITINIB CITRATE
     Dosage: 11 MG, DAILY
     Route: 048
     Dates: start: 20190531
  2. COENZYME Q10 [Concomitant]
     Active Substance: UBIDECARENONE
     Dosage: 200 MG, UNK
     Route: 048
  3. XELJANZ XR [Suspect]
     Active Substance: TOFACITINIB CITRATE
     Indication: RHEUMATOID ARTHRITIS
     Dosage: 11 MG, 1X/DAY
  4. ALBUTEROL HFA [Concomitant]
     Active Substance: ALBUTEROL SULFATE
     Indication: WHEEZING
     Dosage: UNK, AS NEEDED(SIG: INHALE 1-2 PUFFS AS DIRECTED EVERY 6 (SIX) HOURS AS NEEDED FOR WHEEZING)
     Route: 055
     Dates: start: 20151113
  5. CYMBALTA [Concomitant]
     Active Substance: DULOXETINE HYDROCHLORIDE
     Dosage: 60 MG, DAILY
     Route: 048
  6. GLYXAMBI [Concomitant]
     Active Substance: EMPAGLIFLOZIN\LINAGLIPTIN
     Dosage: 25 MG, UNK [EMPAGLIFLOZIN 25 MG AND LINAGLIPTIN 5 MG]
     Route: 048
  7. JANUMET [Concomitant]
     Active Substance: METFORMIN HYDROCHLORIDE\SITAGLIPTIN PHOSPHATE
     Dosage: 1 DF, 2X/DAY [50 MG OF SITAGLIPTIN AND 1,000 MG OF METFORMIN HYDROCHLORIDE]
     Route: 048
     Dates: start: 20051113, end: 20190903
  8. BRILINTA [Concomitant]
     Active Substance: TICAGRELOR
     Dosage: 90 MG, 2X/DAY(TAKE 90 MG BY MOUTH EVERY 12 (TWELVE) HOURS)
     Route: 048
  9. ZANAFLEX [Concomitant]
     Active Substance: TIZANIDINE HYDROCHLORIDE
     Dosage: 4 MG, DAILY
     Dates: start: 20160209
  10. CELEXA [Concomitant]
     Active Substance: CITALOPRAM HYDROBROMIDE
     Dosage: UNK UNK, DAILY(TAKE 1 AND 1/2 TABLETS BY MOUTH DAILY)
     Route: 048
     Dates: start: 20151113, end: 20190903
  11. NEURONTIN [Concomitant]
     Active Substance: GABAPENTIN
     Dosage: 300 MG, 1X/DAY(TAKE ONE CAPSULE  BY MOUTH EVERY EVENING)
     Route: 048
     Dates: start: 20151113
  12. MEDROL [Concomitant]
     Active Substance: METHYLPREDNISOLONE
     Dosage: 4 MG, UNK(TAKE TABLETS PERPACKAGE INSTRUCTIONS)
     Dates: start: 20151227
  13. SINGULAIR [Concomitant]
     Active Substance: MONTELUKAST SODIUM
     Dosage: 10 MG, DAILY
     Route: 048
     Dates: start: 20151113, end: 20190903
  14. VESICARE [Concomitant]
     Active Substance: SOLIFENACIN SUCCINATE
     Dosage: 10 MG, DAILY
     Dates: start: 20151113
  15. PREVACID [Concomitant]
     Active Substance: LANSOPRAZOLE
     Dosage: 30 MG, 1X/DAY(TAKE 1 CAPSULE IN THE MORNING)
     Dates: start: 20151113, end: 20190903
  16. CRESTOR OD [Concomitant]
     Active Substance: ROSUVASTATIN CALCIUM
     Dosage: 40 MG, DAILY
     Route: 048
     Dates: start: 20151113
  17. ELAVIL [Concomitant]
     Active Substance: AMITRIPTYLINE HYDROCHLORIDE
     Dosage: 25 MG, 1X/DAY(TAKE 25 MG BY MOUTH NIGHTLY)
     Route: 048
  18. BYSTOLIC [Concomitant]
     Active Substance: NEBIVOLOL HYDROCHLORIDE
     Dosage: 10 MG, DAILY
     Route: 048
  19. DIOVAN [Concomitant]
     Active Substance: VALSARTAN
     Dosage: 25 MG, DAILY
     Route: 048
     Dates: start: 20151113, end: 20190903
  20. ECOTRIN [Concomitant]
     Active Substance: ASPIRIN
     Dosage: 81 MG, DAILY
     Route: 048
  21. CETIRIZINE [Concomitant]
     Active Substance: CETIRIZINE HYDROCHLORIDE
     Dosage: 10 MG, UNK
     Route: 048
  22. ATARAX [Concomitant]
     Active Substance: HYDROXYZINE HYDROCHLORIDE
     Indication: PRURITUS
     Dosage: 25 MG, AS NEEDED (TAKE 1 TAB BY MOUTH EVERY SIX HOURS AS NEEDED)
     Route: 048
     Dates: start: 20151227

REACTIONS (7)
  - Dysphonia [Unknown]
  - Drug hypersensitivity [Unknown]
  - Hypoaesthesia [Unknown]
  - Rash [Unknown]
  - Pruritus [Unknown]
  - Swelling [Unknown]
  - Musculoskeletal stiffness [Unknown]
